FAERS Safety Report 6716164-0 (Version None)
Quarter: 2010Q2

REPORT INFORMATION
  Report Type: 
  Country: None (occurrence: None)
  Receive Date: 20100507
  Receipt Date: 20100428
  Transmission Date: 20101027
  Serious: Yes (Hospitalization)
  Sender: FDA-Public Use
  Company Number: JP-MERCK-1004USA04719

PATIENT
  Age: 76 Year
  Sex: Male

DRUGS (10)
  1. JANUVIA [Suspect]
     Indication: TYPE 2 DIABETES MELLITUS
     Route: 048
     Dates: start: 20100313
  2. NOVOLIN N [Concomitant]
     Route: 065
  3. LOSARTAN POTASSIUM AND HYDROCHLOROTHIAZIDE [Concomitant]
     Route: 065
  4. DETANTOL R [Concomitant]
     Route: 065
  5. SELARA [Concomitant]
     Route: 065
  6. PEPCID [Concomitant]
     Route: 048
  7. SELBEX [Concomitant]
     Route: 065
  8. ALINAMIN F (FURSULTIAMINE HYDROCHLORIDE) [Concomitant]
     Route: 065
  9. MAGLAX [Concomitant]
     Route: 065
  10. NOVOLIN R [Concomitant]
     Route: 065

REACTIONS (1)
  - HYPOGLYCAEMIA [None]
